FAERS Safety Report 10203322 (Version 2)
Quarter: 2014Q2

REPORT INFORMATION
  Report Type: Report from Study
  Country: BR (occurrence: BR)
  Receive Date: 20140529
  Receipt Date: 20140620
  Transmission Date: 20141212
  Serious: Yes (Hospitalization, Other)
  Sender: FDA-Public Use
  Company Number: PHHY2014BR062499

PATIENT
  Sex: Female
  Weight: 81 kg

DRUGS (6)
  1. SANDOSTATIN LAR [Suspect]
     Indication: ACROMEGALY
     Dosage: 2 DF, (2 AMPOULES), EVERY 28 DAYS
     Dates: start: 2002
  2. DOSTINEX [Concomitant]
     Indication: BLOOD PROLACTIN ABNORMAL
     Dosage: 2 DF, (2 TABLETS), WEDNSDAY AND FRIDAYS
     Dates: start: 2005
  3. METFORMIN [Concomitant]
     Indication: DIABETES MELLITUS
     Dosage: 3 DF, DAILY
  4. INSULIN NPH//INSULIN ISOPHANE BOVINE [Concomitant]
     Indication: DIABETES MELLITUS
     Dosage: 38 U, IN MORNING
     Dates: start: 2000
  5. INSULIN NPH//INSULIN ISOPHANE BOVINE [Concomitant]
     Dosage: 26 U, AT NIGHT
     Dates: start: 2000
  6. INSULIN [Concomitant]
     Indication: DIABETES MELLITUS
     Dosage: 2 U, QD, IN MORNING

REACTIONS (13)
  - Calculus ureteric [Unknown]
  - Hydronephrosis [Unknown]
  - Haemorrhage [Unknown]
  - Lymphoma [Not Recovered/Not Resolved]
  - Skin papilloma [Not Recovered/Not Resolved]
  - Tooth disorder [Not Recovered/Not Resolved]
  - Hypoaesthesia [Unknown]
  - Foot deformity [Unknown]
  - Bone pain [Not Recovered/Not Resolved]
  - Headache [Not Recovered/Not Resolved]
  - Blood growth hormone increased [Unknown]
  - Fatigue [Not Recovered/Not Resolved]
  - Drug ineffective [Unknown]
